FAERS Safety Report 14704508 (Version 1)
Quarter: 2018Q2

REPORT INFORMATION
  Report Type: Spontaneous
  Country: US (occurrence: US)
  Receive Date: 20180402
  Receipt Date: 20180402
  Transmission Date: 20180711
  Serious: Yes (Hospitalization, Other)
  Sender: FDA-Public Use
  Company Number: US-AUROBINDO-AUR-APL-2018-017598

PATIENT

DRUGS (1)
  1. MINOCYCLINE [Suspect]
     Active Substance: MINOCYCLINE\MINOCYCLINE HYDROCHLORIDE
     Indication: CELLULITIS

REACTIONS (4)
  - Confusional state [Recovered/Resolved]
  - Aphthous ulcer [Recovered/Resolved]
  - Hepatitis [Recovered/Resolved]
  - Balance disorder [Recovered/Resolved]
